FAERS Safety Report 5124858-6 (Version None)
Quarter: 2006Q4

REPORT INFORMATION
  Report Type: 
  Country: None (occurrence: None)
  Receive Date: 20061006
  Receipt Date: 20060925
  Transmission Date: 20070319
  Serious: Yes (Other)
  Sender: FDA-Public Use
  Company Number: 2006109130

PATIENT
  Age: 77 Year
  Sex: Female
  Weight: 70 kg

DRUGS (6)
  1. LYRICA [Suspect]
     Indication: NEURALGIA
     Dosage: 150 MG (75 MG, 2 IN 1 D), ORAL
     Route: 048
     Dates: start: 20060714, end: 20060804
  2. MAGNESIUM OXIDE (MAGNESIUM OXIDE) [Concomitant]
  3. TEMAZEPAM [Concomitant]
  4. NOROXIN [Concomitant]
  5. CARBOPLATIN [Concomitant]
  6. TAXOL [Concomitant]

REACTIONS (1)
  - AURA [None]
